FAERS Safety Report 11475272 (Version 3)
Quarter: 2015Q4

REPORT INFORMATION
  Report Type: Spontaneous
  Country: US (occurrence: US)
  Receive Date: 20150909
  Receipt Date: 20151027
  Transmission Date: 20160304
  Serious: Yes (Life-Threatening, Hospitalization, Other)
  Sender: FDA-Public Use
  Company Number: PHHY2015US103748

PATIENT
  Age: 54 Year
  Sex: Female

DRUGS (18)
  1. BACLOFEN INTRATHECAL [Suspect]
     Active Substance: BACLOFEN
     Indication: HEAD INJURY
  2. BACLOFEN. [Suspect]
     Active Substance: BACLOFEN
     Indication: MUSCLE SPASMS
     Dosage: 10 MG, PRN (EVERY 6-8 HOUR)
     Route: 048
  3. ASPIRIN. [Suspect]
     Active Substance: ASPIRIN
     Indication: PRODUCT USED FOR UNKNOWN INDICATION
     Dosage: 1 DF, QD (325 MG)
     Route: 065
  4. ATORVASTATIN CALCIUM. [Suspect]
     Active Substance: ATORVASTATIN CALCIUM
     Indication: PRODUCT USED FOR UNKNOWN INDICATION
     Dosage: 1 MG, QD (20 MG)
     Route: 065
  5. ATENOLOL. [Suspect]
     Active Substance: ATENOLOL
     Indication: PRODUCT USED FOR UNKNOWN INDICATION
     Dosage: 1 DF, QD (25 MG)
     Route: 065
  6. VICODIN HP [Suspect]
     Active Substance: ACETAMINOPHEN\HYDROCODONE BITARTRATE
     Indication: PRODUCT USED FOR UNKNOWN INDICATION
     Dosage: UNK (10 MG TO 300 MG EVERY 12 TO 24 HOUR AS NEEDED)
     Route: 048
     Dates: end: 20150908
  7. BACLOFEN. [Suspect]
     Active Substance: BACLOFEN
     Dosage: 10 MG, PRN (1 TABLET EVERY 10 HOUR)
     Route: 048
  8. MORPHINE [Suspect]
     Active Substance: MORPHINE
     Indication: MUSCLE SPASTICITY
     Dosage: 2.470 UG, QD
     Route: 037
  9. MORPHINE [Suspect]
     Active Substance: MORPHINE
     Indication: BRAIN INJURY
  10. MORPHINE [Suspect]
     Active Substance: MORPHINE
     Indication: PRODUCT USED FOR UNKNOWN INDICATION
     Dosage: 3.997 MG, UNK
     Route: 048
  11. PANTOPRAZOLE SODIUM. [Suspect]
     Active Substance: PANTOPRAZOLE SODIUM
     Indication: PRODUCT USED FOR UNKNOWN INDICATION
     Dosage: 40 MG, QD
     Route: 065
  12. BACLOFEN INTRATHECAL [Suspect]
     Active Substance: BACLOFEN
     Indication: BRAIN INJURY
     Dosage: 399.7 UNK, UNK
     Route: 037
  13. BACLOFEN. [Suspect]
     Active Substance: BACLOFEN
     Dosage: 3.997 UNK, UNK
     Route: 048
  14. MORPHINE [Suspect]
     Active Substance: MORPHINE
     Indication: HEAD INJURY
     Dosage: 3.997 MG, (BOLUS DOSE)
     Route: 037
     Dates: start: 20150817
  15. CLOPIDOGREL [Suspect]
     Active Substance: CLOPIDOGREL BISULFATE
     Indication: PRODUCT USED FOR UNKNOWN INDICATION
     Dosage: 75 MG, QD
     Route: 065
  16. BACLOFEN INTRATHECAL [Suspect]
     Active Substance: BACLOFEN
     Indication: MUSCLE SPASTICITY
     Dosage: 247 UG, QD
     Route: 037
  17. ALPRAZOLAM. [Suspect]
     Active Substance: ALPRAZOLAM
     Indication: PRODUCT USED FOR UNKNOWN INDICATION
     Dosage: 1 DF, QD (25 MG AT BEDTIME)
     Route: 065
  18. PHENYTOIN SODIUM. [Suspect]
     Active Substance: PHENYTOIN SODIUM
     Indication: PRODUCT USED FOR UNKNOWN INDICATION
     Dosage: 100 MG, TID
     Route: 048

REACTIONS (10)
  - White blood cell count increased [Recovered/Resolved]
  - Laboratory test abnormal [Recovered/Resolved]
  - Loss of consciousness [Recovered/Resolved]
  - Incorrect drug administration rate [Recovered/Resolved]
  - Overdose [Recovered/Resolved]
  - Movement disorder [Recovered/Resolved]
  - No therapeutic response [Recovered/Resolved]
  - Infection [Recovered/Resolved]
  - Malaise [Recovered/Resolved]
  - Drug withdrawal syndrome [Recovered/Resolved]

NARRATIVE: CASE EVENT DATE: 201507
